FAERS Safety Report 8184966-2 (Version None)
Quarter: 2012Q1

REPORT INFORMATION
  Report Type: 
  Country: None (occurrence: None)
  Receive Date: 20120305
  Receipt Date: 20120229
  Transmission Date: 20120608
  Serious: Yes (Other)
  Sender: FDA-Public Use
  Company Number: ZA-GLAXOSMITHKLINE-B0785119A

PATIENT
  Age: 84 Year
  Sex: Female

DRUGS (4)
  1. PURBAC [Concomitant]
  2. AMLODIPINE BESYLATE [Concomitant]
  3. LEVOTHYROXINE SODIUM [Concomitant]
  4. SEREVENT [Suspect]
     Indication: PRODUCT USED FOR UNKNOWN INDICATION
     Route: 055

REACTIONS (2)
  - APHASIA [None]
  - PRODUCT QUALITY ISSUE [None]
